FAERS Safety Report 4427480-X (Version None)
Quarter: 2004Q3

REPORT INFORMATION
  Report Type: 
  Country: None (occurrence: None)
  Receive Date: 20040812
  Receipt Date: 20040804
  Transmission Date: 20050211
  Serious: Yes (Death)
  Sender: FDA-Public Use
  Company Number: 2004JP001503

PATIENT
  Age: 1 Month
  Sex: Male

DRUGS (1)
  1. PROGRAF [Suspect]
     Indication: LIVER TRANSPLANT

REACTIONS (15)
  - COAGULOPATHY [None]
  - DEPRESSED LEVEL OF CONSCIOUSNESS [None]
  - FEEDING PROBLEM IN NEWBORN [None]
  - HAEMATOCHEZIA [None]
  - HAEMORRHAGE [None]
  - HEPATIC FAILURE [None]
  - HEPATIC NECROSIS [None]
  - HYPERKALAEMIA [None]
  - NEONATAL DISORDER [None]
  - OLIGURIA [None]
  - PLATELET COUNT DECREASED [None]
  - RED BLOOD CELL ABNORMALITY [None]
  - VENOOCCLUSIVE LIVER DISEASE [None]
  - VENTRICULAR FLUTTER [None]
  - VOMITING [None]
